FAERS Safety Report 10275098 (Version 1)
Quarter: 2014Q3

REPORT INFORMATION
  Report Type: Report from Study
  Country: CO (occurrence: CO)
  Receive Date: 20140703
  Receipt Date: 20140703
  Transmission Date: 20150326
  Serious: Yes (Death)
  Sender: FDA-Public Use
  Company Number: CO-ROCHE-1428507

PATIENT
  Sex: Female
  Weight: 54 kg

DRUGS (1)
  1. LUCENTIS [Suspect]
     Active Substance: RANIBIZUMAB
     Indication: RETINAL INJURY
     Route: 050

REACTIONS (1)
  - Gastric neoplasm [Fatal]
